FAERS Safety Report 10211342 (Version 2)
Quarter: 2014Q2

REPORT INFORMATION
  Report Type: Report from Study
  Country: JP (occurrence: JP)
  Receive Date: 20140602
  Receipt Date: 20140624
  Transmission Date: 20141212
  Serious: Yes (Hospitalization)
  Sender: FDA-Public Use
  Company Number: JP-GLAXOSMITHKLINE-B0998494A

PATIENT
  Age: 12 Year
  Sex: Male
  Weight: 72 kg

DRUGS (19)
  1. LAMICTAL [Suspect]
     Indication: PARTIAL SEIZURES
     Dosage: 10MG PER DAY
     Route: 048
     Dates: start: 20131003, end: 20131027
  2. LAMICTAL [Suspect]
     Indication: PARTIAL SEIZURES
     Dosage: 20MG PER DAY
     Route: 048
     Dates: start: 20131028, end: 20131110
  3. LAMICTAL [Suspect]
     Indication: PARTIAL SEIZURES
     Dosage: 15MG TWICE PER DAY
     Route: 048
     Dates: start: 20131111, end: 20131124
  4. LAMICTAL [Suspect]
     Indication: PARTIAL SEIZURES
     Dosage: 20MG TWICE PER DAY
     Route: 048
     Dates: start: 20131125, end: 20131208
  5. LAMICTAL [Suspect]
     Indication: PARTIAL SEIZURES
     Dosage: 25MG TWICE PER DAY
     Route: 048
     Dates: start: 20131209, end: 20131218
  6. LAMICTAL [Suspect]
     Indication: PARTIAL SEIZURES
     Dosage: 30MG TWICE PER DAY
     Route: 048
     Dates: start: 20131219, end: 20140108
  7. LAMICTAL [Suspect]
     Indication: PARTIAL SEIZURES
     Dosage: 32.5MG TWICE PER DAY
     Route: 048
     Dates: start: 20140109, end: 20140226
  8. LAMICTAL [Suspect]
     Indication: PARTIAL SEIZURES
     Dosage: 35MG TWICE PER DAY
     Route: 048
     Dates: start: 20140227, end: 20140328
  9. LAMICTAL [Suspect]
     Indication: PARTIAL SEIZURES
     Dosage: 37.5MG TWICE PER DAY
     Route: 048
     Dates: start: 20140329, end: 20140527
  10. DEPAKENE-R [Suspect]
     Indication: PARTIAL SEIZURES
     Route: 048
     Dates: start: 20110929, end: 20111019
  11. DEPAKENE-R [Suspect]
     Indication: PARTIAL SEIZURES
     Route: 048
     Dates: start: 20111020, end: 20121205
  12. DEPAKENE-R [Suspect]
     Indication: PARTIAL SEIZURES
     Route: 048
     Dates: start: 20121206, end: 20130523
  13. DEPAKENE-R [Suspect]
     Indication: PARTIAL SEIZURES
     Route: 048
     Dates: start: 20130524, end: 20130529
  14. DEPAKENE-R [Suspect]
     Indication: PARTIAL SEIZURES
     Route: 048
     Dates: start: 20130530, end: 20131110
  15. DEPAKENE-R [Suspect]
     Indication: PARTIAL SEIZURES
     Route: 048
     Dates: start: 20131111, end: 20131208
  16. DEPAKENE-R [Suspect]
     Indication: PARTIAL SEIZURES
     Route: 048
     Dates: start: 20131209, end: 20131218
  17. DEPAKENE-R [Suspect]
     Indication: PARTIAL SEIZURES
     Route: 048
     Dates: start: 20131219, end: 20140108
  18. DEPAKENE-R [Suspect]
     Indication: PARTIAL SEIZURES
     Route: 048
     Dates: start: 20140109
  19. DEPAKENE [Concomitant]
     Indication: PARTIAL SEIZURES
     Route: 048
     Dates: start: 20110811, end: 20110928

REACTIONS (1)
  - Type 2 diabetes mellitus [Recovering/Resolving]
